FAERS Safety Report 6701608-0 (Version None)
Quarter: 2010Q2

REPORT INFORMATION
  Report Type: 
  Country: None (occurrence: None)
  Receive Date: 20100427
  Receipt Date: 20100413
  Transmission Date: 20101027
  Serious: Yes (Death)
  Sender: FDA-Public Use
  Company Number: 2010AC000266

PATIENT
  Sex: Male

DRUGS (1)
  1. DIGOXIN                        (AMIDE) [Suspect]
     Dosage: 125 MCG; PO
     Route: 048
     Dates: start: 20030101, end: 20080101

REACTIONS (8)
  - CARDIAC DISORDER [None]
  - DIZZINESS [None]
  - GENERAL PHYSICAL HEALTH DETERIORATION [None]
  - HYPOTENSION [None]
  - MULTIPLE INJURIES [None]
  - NAUSEA [None]
  - RENAL FAILURE [None]
  - VOMITING [None]
